FAERS Safety Report 25270313 (Version 2)
Quarter: 2025Q2

REPORT INFORMATION
  Report Type: Spontaneous
  Country: US (occurrence: US)
  Receive Date: 20250505
  Receipt Date: 20250619
  Transmission Date: 20250716
  Serious: No
  Sender: NOVARTIS
  Company Number: US-002147023-NVSC2025US072752

PATIENT
  Age: 62 Year
  Sex: Female
  Weight: 58.06 kg

DRUGS (1)
  1. COSENTYX [Suspect]
     Active Substance: SECUKINUMAB
     Indication: Hidradenitis
     Route: 058
     Dates: start: 202404, end: 202504

REACTIONS (1)
  - Condition aggravated [Recovering/Resolving]
